FAERS Safety Report 21535362 (Version 1)
Quarter: 2022Q4

REPORT INFORMATION
  Report Type: Spontaneous
  Country: US (occurrence: US)
  Receive Date: 20221101
  Receipt Date: 20221101
  Transmission Date: 20230112
  Serious: No
  Sender: FDA-Public Use
  Company Number: US-MIGRATION_PFIZER-2022BHV002145

PATIENT
  Age: 73 Year
  Sex: Male
  Weight: 90.800 kg

DRUGS (2)
  1. NURTEC ODT [Suspect]
     Active Substance: RIMEGEPANT SULFATE
     Indication: Migraine prophylaxis
     Dosage: ONE TABLET, LOT NUMBER AND EXPIRATION DATE ARE FROM THE MOST RECENT PRESCRIPTION DATED 07-AUG-2022
     Route: 048
     Dates: start: 20220707
  2. NURTEC ODT [Suspect]
     Active Substance: RIMEGEPANT SULFATE
     Indication: Migraine

REACTIONS (1)
  - Drug ineffective [Not Recovered/Not Resolved]
